FAERS Safety Report 9909636 (Version 2)
Quarter: 2014Q1

REPORT INFORMATION
  Report Type: Spontaneous
  Country: DE (occurrence: DE)
  Receive Date: 20140219
  Receipt Date: 20140219
  Transmission Date: 20141002
  Serious: Yes (Other)
  Sender: FDA-Public Use
  Company Number: DE-GLAXOSMITHKLINE-B0901009A

PATIENT
  Age: 47 Year
  Sex: Male

DRUGS (2)
  1. DABRAFENIB [Suspect]
     Indication: METASTATIC MALIGNANT MELANOMA
     Dosage: 150MG TWICE PER DAY
     Route: 065
  2. RADIATION [Suspect]
     Indication: METASTATIC MALIGNANT MELANOMA
     Dosage: 2GY PER DAY

REACTIONS (2)
  - Radiation skin injury [Unknown]
  - Skin toxicity [Unknown]
